FAERS Safety Report 10039317 (Version 1)
Quarter: 2014Q1

REPORT INFORMATION
  Report Type: Spontaneous
  Country: US (occurrence: US)
  Receive Date: 20140326
  Receipt Date: 20140326
  Transmission Date: 20141002
  Serious: Yes (Hospitalization, Other)
  Sender: FDA-Public Use
  Company Number: US-TEVA-470885USA

PATIENT
  Age: 61 Year
  Sex: Female
  Weight: 98.97 kg

DRUGS (12)
  1. PROAIR HFA [Suspect]
     Indication: WHEEZING
     Dates: start: 2012
  2. PROAIR HFA [Suspect]
     Indication: HYPERSENSITIVITY
  3. SYMBICORT [Concomitant]
     Indication: WHEEZING
  4. SYMBICORT [Concomitant]
     Indication: HYPERSENSITIVITY
  5. LIPITOR [Concomitant]
     Indication: BLOOD CHOLESTEROL ABNORMAL
  6. LISINOPRIL [Concomitant]
     Indication: BLOOD PRESSURE ABNORMAL
     Dosage: BID
  7. TOPROL [Concomitant]
     Indication: BLOOD PRESSURE ABNORMAL
     Dosage: QD
  8. XANAX [Concomitant]
     Indication: HYPERTENSION
  9. XYZAL [Concomitant]
     Indication: HYPERSENSITIVITY
  10. ASPIRIN [Concomitant]
     Indication: CARDIAC DISORDER
     Dosage: 81 MILLIGRAM DAILY;
  11. SYNTHROID [Concomitant]
     Indication: HYPOTHYROIDISM
  12. BRILINTA [Concomitant]
     Indication: CARDIOVASCULAR EVENT PROPHYLAXIS
     Dosage: 180 MILLIGRAM DAILY;

REACTIONS (7)
  - Myocardial infarction [Recovered/Resolved]
  - Blood pressure abnormal [Not Recovered/Not Resolved]
  - Wheezing [Not Recovered/Not Resolved]
  - Hypersensitivity [Not Recovered/Not Resolved]
  - Stress [Not Recovered/Not Resolved]
  - Nervousness [Not Recovered/Not Resolved]
  - Anxiety [Not Recovered/Not Resolved]
